FAERS Safety Report 12402587 (Version 2)
Quarter: 2016Q2

REPORT INFORMATION
  Report Type: Spontaneous
  Country: US (occurrence: US)
  Receive Date: 20160525
  Receipt Date: 20160525
  Transmission Date: 20160815
  Serious: Yes (Hospitalization)
  Sender: FDA-Public Use
  Company Number: US-UNICHEM LABORATORIES LIMITED-UCM201405-000075

PATIENT
  Age: 84 Year
  Sex: Female
  Weight: 88 kg

DRUGS (8)
  1. TELMISARTAN. [Concomitant]
     Active Substance: TELMISARTAN
     Route: 048
  2. ALBUTEROL. [Concomitant]
     Active Substance: ALBUTEROL
  3. MELOXICAM. [Suspect]
     Active Substance: MELOXICAM
     Indication: BACK PAIN
  4. LEVOTHYROXINE. [Concomitant]
     Active Substance: LEVOTHYROXINE
     Route: 048
  5. ATORVASTATIN [Concomitant]
     Active Substance: ATORVASTATIN
     Route: 048
  6. MONTELUKAST [Concomitant]
     Active Substance: MONTELUKAST SODIUM
     Route: 048
  7. SALMETEROL [Concomitant]
     Active Substance: SALMETEROL
  8. FLUTICASONE [Concomitant]
     Active Substance: FLUTICASONE\FLUTICASONE PROPIONATE

REACTIONS (7)
  - Drug hypersensitivity [Unknown]
  - Petechiae [Unknown]
  - Ecchymosis [Unknown]
  - Faeces discoloured [Unknown]
  - Contusion [Unknown]
  - Haemorrhage [Unknown]
  - Thrombocytopenia [Recovering/Resolving]
